FAERS Safety Report 7493541-4 (Version None)
Quarter: 2011Q2

REPORT INFORMATION
  Report Type: 
  Country: None (occurrence: None)
  Receive Date: 20110520
  Receipt Date: 20110518
  Transmission Date: 20111010
  Serious: Yes (Hospitalization)
  Sender: FDA-Public Use
  Company Number: CHPA2011US06918

PATIENT
  Sex: Female
  Weight: 86.168 kg

DRUGS (2)
  1. HYPNOTICS AND SEDATIVES [Concomitant]
     Indication: INSOMNIA
     Dosage: UNK
     Route: 048
     Dates: start: 20110429
  2. VOLTAREN [Suspect]
     Indication: POSTOPERATIVE HETEROTOPIC CALCIFICATION
     Dosage: UNK
     Route: 061
     Dates: start: 20100101, end: 20110429

REACTIONS (12)
  - EYE SWELLING [None]
  - WRONG TECHNIQUE IN DRUG USAGE PROCESS [None]
  - OCULAR HYPERAEMIA [None]
  - BURNING SENSATION [None]
  - DRUG ADMINISTERED AT INAPPROPRIATE SITE [None]
  - CHEILITIS [None]
  - DYSPNOEA [None]
  - FEELING HOT [None]
  - SWOLLEN TONGUE [None]
  - OFF LABEL USE [None]
  - TONGUE DISORDER [None]
  - LIP SWELLING [None]
